FAERS Safety Report 4279160-1 (Version None)
Quarter: 2004Q1

REPORT INFORMATION
  Report Type: 
  Country: None (occurrence: None)
  Receive Date: 20040123
  Receipt Date: 20040123
  Transmission Date: 20041129
  Serious: Yes (Other)
  Sender: FDA-Public Use
  Company Number: None

PATIENT

DRUGS (2)
  1. SUCCINYLCHOLINE CHLORIDE [Suspect]
     Dates: start: 20040121, end: 20040122
  2. SUCCINYLCHOLINE CHLORIDE [Suspect]

REACTIONS (1)
  - MEDICATION ERROR [None]
